FAERS Safety Report 8428074-1 (Version None)
Quarter: 2012Q2

REPORT INFORMATION
  Report Type: 
  Country: None (occurrence: None)
  Receive Date: 20120611
  Receipt Date: 20120529
  Transmission Date: 20120825
  Serious: No
  Sender: FDA-Public Use
  Company Number: US-ASTRAZENECA-2012SE34611

PATIENT
  Age: 61 Year
  Sex: Female
  Weight: 72.6 kg

DRUGS (9)
  1. PRILOSEC [Suspect]
     Indication: OESOPHAGEAL CARCINOMA
     Route: 048
  2. PRILOSEC [Suspect]
     Indication: GASTROOESOPHAGEAL REFLUX DISEASE
     Route: 048
  3. NEXIUM [Suspect]
     Indication: GASTROOESOPHAGEAL REFLUX DISEASE
     Route: 048
  4. NAPROXEN [Concomitant]
     Indication: ARTHRITIS
  5. NEXIUM [Suspect]
     Indication: OESOPHAGEAL CARCINOMA
     Route: 048
  6. LISINOPRIL AND HYDROCHLOROTHIAZIDE [Suspect]
     Indication: BLOOD PRESSURE ABNORMAL
     Dosage: EVERY MORNING
     Route: 048
  7. METOPROLOL TAR [Concomitant]
     Indication: BLOOD PRESSURE ABNORMAL
  8. FLUOXETINE [Concomitant]
     Indication: HEART RATE INCREASED
  9. VYTORIN [Concomitant]
     Indication: BLOOD CHOLESTEROL INCREASED

REACTIONS (2)
  - DYSPEPSIA [None]
  - INTENTIONAL DRUG MISUSE [None]
